FAERS Safety Report 6803870-2 (Version None)
Quarter: 2010Q2

REPORT INFORMATION
  Report Type: 
  Country: None (occurrence: None)
  Receive Date: 20100628
  Receipt Date: 20100618
  Transmission Date: 20101027
  Serious: No
  Sender: FDA-Public Use
  Company Number: BR-ABBOTT-10P-020-0624300-00

PATIENT
  Sex: Female
  Weight: 86 kg

DRUGS (5)
  1. HUMIRA [Suspect]
     Indication: RHEUMATOID ARTHRITIS
     Route: 058
     Dates: start: 20090101, end: 20090801
  2. HUMIRA [Suspect]
     Route: 058
     Dates: start: 20090901
  3. METHOTREXATE [Concomitant]
     Indication: RHEUMATOID ARTHRITIS
     Route: 048
     Dates: start: 20070101
  4. MAGISTRAL FORMULA [Concomitant]
     Indication: RHEUMATOID ARTHRITIS
     Route: 048
     Dates: start: 20050101, end: 20100131
  5. MAGISTRAL FORMULA [Concomitant]
     Route: 048
     Dates: start: 20100201

REACTIONS (3)
  - NASOPHARYNGITIS [None]
  - RADICAL HYSTERECTOMY [None]
  - UTERINE LEIOMYOMA [None]
